FAERS Safety Report 16269059 (Version 1)
Quarter: 2019Q2

REPORT INFORMATION
  Report Type: Spontaneous
  Country: US (occurrence: US)
  Receive Date: 20190503
  Receipt Date: 20190503
  Transmission Date: 20190711
  Serious: Yes (Other)
  Sender: FDA-Public Use
  Company Number: US-BAYER-2019-088325

PATIENT
  Age: 58 Year
  Sex: Male

DRUGS (3)
  1. ABCIXIMAB [Interacting]
     Active Substance: ABCIXIMAB
  2. TICAGRELOR. [Interacting]
     Active Substance: TICAGRELOR
  3. ACETYLSALICYLIC ACID (CARDIO) [Suspect]
     Active Substance: ASPIRIN

REACTIONS (3)
  - Labelled drug-drug interaction medication error [None]
  - Haematoma [None]
  - Immune thrombocytopenic purpura [None]
